FAERS Safety Report 6643128-8 (Version None)
Quarter: 2010Q1

REPORT INFORMATION
  Report Type: 
  Country: None (occurrence: None)
  Receive Date: 20100319
  Receipt Date: 20100308
  Transmission Date: 20100710
  Serious: Yes (Other)
  Sender: FDA-Public Use
  Company Number: PHEH2009US14323

PATIENT
  Sex: Female

DRUGS (2)
  1. RECLAST [Suspect]
     Dosage: UNK, UNK
     Dates: start: 20090619, end: 20090619
  2. DULCOLAX [Suspect]
     Indication: CONSTIPATION
     Dosage: UNK, UNK
     Route: 065

REACTIONS (5)
  - CONSTIPATION [None]
  - MYOCARDIAL INFARCTION [None]
  - TOOTH DISORDER [None]
  - TOOTH FRACTURE [None]
  - TOOTH INFECTION [None]
